FAERS Safety Report 5656853-2 (Version None)
Quarter: 2008Q1

REPORT INFORMATION
  Report Type: 
  Country: None (occurrence: None)
  Receive Date: 20080310
  Receipt Date: 20080226
  Transmission Date: 20080703
  Serious: Yes (Hospitalization)
  Sender: FDA-Public Use
  Company Number: GB-AMGEN-US267516

PATIENT
  Sex: Female
  Weight: 34 kg

DRUGS (2)
  1. ENBREL [Suspect]
     Indication: JUVENILE ARTHRITIS
     Route: 058
     Dates: start: 20070330, end: 20070501
  2. PIROXICAM [Suspect]
     Route: 048
     Dates: start: 20070330, end: 20070501

REACTIONS (2)
  - FLUSHING [None]
  - HALLUCINATION [None]
